FAERS Safety Report 19078057 (Version 1)
Quarter: 2021Q1

REPORT INFORMATION
  Report Type: Spontaneous
  Country: US (occurrence: US)
  Receive Date: 20210331
  Receipt Date: 20210331
  Transmission Date: 20210420
  Serious: Yes (Hospitalization)
  Sender: FDA-Public Use
  Company Number: None

PATIENT
  Age: 63 Year
  Sex: Female
  Weight: 68 kg

DRUGS (1)
  1. LISINOPRIL. [Suspect]
     Active Substance: LISINOPRIL
     Indication: HYPERTENSION
     Route: 048
     Dates: start: 20190131, end: 20201220

REACTIONS (6)
  - Angioedema [None]
  - Bradycardia [None]
  - Respiratory arrest [None]
  - Anaphylactic reaction [None]
  - SARS-CoV-2 test positive [None]
  - Respiratory depression [None]

NARRATIVE: CASE EVENT DATE: 20191220
